FAERS Safety Report 23466672 (Version 3)
Quarter: 2024Q4

REPORT INFORMATION
  Report Type: Spontaneous
  Country: CA (occurrence: CA)
  Receive Date: 20240201
  Receipt Date: 20241204
  Transmission Date: 20250115
  Serious: Yes (Other)
  Sender: BAUSCH AND LOMB
  Company Number: CA-BAUSCH-BL-2024-001464

PATIENT
  Age: 45 Year
  Sex: Female

DRUGS (5)
  1. BUDESONIDE [Suspect]
     Active Substance: BUDESONIDE
     Indication: Product used for unknown indication
     Route: 065
  2. ENTYVIO [Suspect]
     Active Substance: VEDOLIZUMAB
     Indication: Colitis ulcerative
     Dosage: POWDER FOR SOLUTION INTRAVENOUS, FOR I.V. INFUSION
     Route: 042
  3. ENTYVIO [Suspect]
     Active Substance: VEDOLIZUMAB
     Dosage: FOR I.V.?INFUSION
     Route: 042
  4. CORTIMENT [Concomitant]
     Indication: Product used for unknown indication
     Dosage: UNKNOWN
  5. MESALAMINE [Concomitant]
     Active Substance: MESALAMINE
     Indication: Product used for unknown indication
     Dosage: UNKNOWN

REACTIONS (3)
  - Colitis ulcerative [Recovering/Resolving]
  - Therapy non-responder [Recovering/Resolving]
  - Off label use [Recovering/Resolving]
